FAERS Safety Report 5237482-1 (Version None)
Quarter: 2007Q1

REPORT INFORMATION
  Report Type: 
  Country: None (occurrence: None)
  Receive Date: 20070213
  Receipt Date: 20070201
  Transmission Date: 20070707
  Serious: Yes (Death)
  Sender: FDA-Public Use
  Company Number: US-ELI_LILLY_AND_COMPANY-US200606002066

PATIENT

DRUGS (3)
  1. HUMALOG [Suspect]
     Dosage: UNK, UNK
     Route: 064
     Dates: start: 20050101, end: 20051201
  2. LANTUS [Concomitant]
     Route: 064
  3. HUMULIN R [Suspect]
     Dosage: UNK, UNK
     Route: 064
     Dates: start: 20050101, end: 20051201

REACTIONS (2)
  - DRUG EXPOSURE DURING PREGNANCY [None]
  - INTRA-UTERINE DEATH [None]
